FAERS Safety Report 4606129-7 (Version None)
Quarter: 2005Q1

REPORT INFORMATION
  Report Type: 
  Country: None (occurrence: None)
  Receive Date: 20050311
  Receipt Date: 20050105
  Transmission Date: 20050727
  Serious: Yes (Hospitalization)
  Sender: FDA-Public Use
  Company Number: PHEH2005US00538

PATIENT
  Age: 82 Year
  Sex: Male

DRUGS (1)
  1. DESFERAL [Suspect]
     Indication: BLOOD IRON INCREASED
     Dosage: UNK, UNK
     Route: 058
     Dates: start: 20040503, end: 20040601

REACTIONS (8)
  - ASTHENIA [None]
  - BLOOD PRESSURE DECREASED [None]
  - CARDIOVASCULAR DISORDER [None]
  - FEELING ABNORMAL [None]
  - LOSS OF CONSCIOUSNESS [None]
  - PYREXIA [None]
  - SKIN REACTION [None]
  - SYNCOPE [None]
